FAERS Safety Report 11811010 (Version 1)
Quarter: 2015Q4

REPORT INFORMATION
  Report Type: Spontaneous
  Country: US (occurrence: None)
  Receive Date: 20151207
  Receipt Date: 20151207
  Transmission Date: 20160305
  Serious: Yes (Hospitalization)
  Sender: FDA-Public Use
  Company Number: None

PATIENT
  Age: 55 Year
  Sex: Female
  Weight: 59.5 kg

DRUGS (2)
  1. ERBITUX [Suspect]
     Active Substance: CETUXIMAB
     Dates: end: 20151027
  2. TAXOTERE [Suspect]
     Active Substance: DOCETAXEL
     Dates: start: 20151027

REACTIONS (3)
  - Lower respiratory tract congestion [None]
  - Pneumonitis [None]
  - Pyrexia [None]

NARRATIVE: CASE EVENT DATE: 20151127
